FAERS Safety Report 7815694-8 (Version None)
Quarter: 2011Q4

REPORT INFORMATION
  Report Type: 
  Country: None (occurrence: None)
  Receive Date: 20111014
  Receipt Date: 20111004
  Transmission Date: 20120403
  Serious: Yes (Hospitalization, Other)
  Sender: FDA-Public Use
  Company Number: PHHY2011NL89254

PATIENT
  Age: 49 Year
  Sex: Male

DRUGS (19)
  1. CLOZAPINE [Concomitant]
     Dosage: 250 MG, QD
  2. QUETIAPINE [Concomitant]
     Dosage: 75 MG, QD
  3. ESOMEPRAZOLE SODIUM [Concomitant]
     Dosage: 40 MG, QD
  4. HYDROCHLOROTHIAZIDE [Suspect]
     Dosage: UNK UKN, UNK
  5. METOPROLOL TARTRATE [Suspect]
     Indication: HYPERTENSION
     Dosage: 50 MG, QD
  6. CLOZAPINE [Concomitant]
     Indication: SCHIZOPHRENIA, PARANOID TYPE
     Dosage: 325 MG, QD
  7. ENALAPRIL MALEATE [Concomitant]
     Dosage: 10 MG, QD
  8. CARBASALATE CALCIUM [Concomitant]
     Dosage: 100 MG, QD
  9. OXAZEPAM [Concomitant]
     Dosage: 20 MG, QD
  10. HALOPERIDOL [Concomitant]
  11. DIPYRIDAMOLE [Concomitant]
     Dosage: 200 MG, QD
  12. CLOZAPINE [Concomitant]
     Dosage: 500 MG, QD
  13. SIMVASTATIN [Concomitant]
     Dosage: 40 MG, QD
  14. METOPROLOL TARTRATE [Suspect]
     Dosage: 200 MG, QD
  15. AMLODIPINE [Concomitant]
     Dosage: 5 MG, QD
  16. ANTIHISTAMINICS [Concomitant]
  17. METOPROLOL TARTRATE [Suspect]
     Dosage: 100 MG, QD
  18. TEMAZEPAM [Concomitant]
     Dosage: 10 MG, QD
  19. BARNIDIPINE [Concomitant]

REACTIONS (6)
  - HEMIPARESIS [None]
  - RENAL FAILURE [None]
  - ANGIOEDEMA [None]
  - DRUG INEFFECTIVE [None]
  - HYPERTENSIVE CRISIS [None]
  - LACUNAR INFARCTION [None]
